FAERS Safety Report 4515730-0 (Version None)
Quarter: 2004Q4

REPORT INFORMATION
  Report Type: 
  Country: None (occurrence: None)
  Receive Date: 20041116
  Receipt Date: 20041101
  Transmission Date: 20050328
  Serious: Yes (Other)
  Sender: FDA-Public Use
  Company Number: F03200400103

PATIENT
  Age: 3 Year
  Sex: Male
  Weight: 12.2 kg

DRUGS (6)
  1. RASBURICASE - SOLUTION - 1.5 MG [Suspect]
     Indication: BLOOD URIC ACID INCREASED
     Dosage: 2.5 MG QD - INTRAVENOUS NOS
     Route: 042
     Dates: start: 20041015, end: 20041017
  2. CYCLOPHOSPHAMIDE [Concomitant]
  3. VINCRISTINE [Concomitant]
  4. PREDNISOLONE [Concomitant]
  5. METHOTREXATE [Concomitant]
  6. CYTARABINE [Concomitant]

REACTIONS (3)
  - ALANINE AMINOTRANSFERASE INCREASED [None]
  - ASPARTATE AMINOTRANSFERASE INCREASED [None]
  - BLOOD URIC ACID DECREASED [None]
